FAERS Safety Report 11005478 (Version 1)
Quarter: 2015Q2

REPORT INFORMATION
  Report Type: Spontaneous
  Country: US (occurrence: US)
  Receive Date: 20150409
  Receipt Date: 20150409
  Transmission Date: 20150821
  Serious: No
  Sender: FDA-Public Use
  Company Number: US-ALLERGAN-1425948US

PATIENT
  Age: 67 Year
  Sex: Female

DRUGS (7)
  1. LATISSE [Concomitant]
     Active Substance: BIMATOPROST
     Dosage: UNK
     Dates: start: 2014, end: 20141206
  2. SYNTHROID [Concomitant]
     Active Substance: LEVOTHYROXINE SODIUM
     Dosage: 1 ?G, QAM
     Route: 048
     Dates: start: 2013
  3. LEXAPRO [Concomitant]
     Active Substance: ESCITALOPRAM OXALATE
     Dosage: 10 MG, UNK
     Route: 048
     Dates: start: 2005
  4. ZYRTEC [Concomitant]
     Active Substance: CETIRIZINE HYDROCHLORIDE
     Indication: SEASONAL ALLERGY
     Dosage: THE 24 HR ONE
     Route: 048
  5. LUMIGAN [Suspect]
     Active Substance: BIMATOPROST
     Indication: GLAUCOMA
     Dosage: 2 GTT, QHS
     Route: 047
     Dates: start: 20141206
  6. SIMVASTATIN. [Concomitant]
     Active Substance: SIMVASTATIN
     Dosage: UNK
     Dates: start: 2005
  7. ALLEGRA [Concomitant]
     Active Substance: FEXOFENADINE HYDROCHLORIDE
     Indication: SEASONAL ALLERGY
     Dosage: TAKEN AT NIGHT OR IN THE MORNING
     Route: 048
     Dates: start: 20141215

REACTIONS (6)
  - Hypersensitivity [Unknown]
  - Cough [Unknown]
  - Optic nerve cupping [Unknown]
  - Lacrimation increased [Unknown]
  - Rhinorrhoea [Unknown]
  - Throat irritation [Unknown]
